FAERS Safety Report 16100134 (Version 1)
Quarter: 2019Q1

REPORT INFORMATION
  Report Type: Spontaneous
  Country: US (occurrence: US)
  Receive Date: 20190219
  Receipt Date: 20190219
  Transmission Date: 20190418
  Serious: No
  Sender: FDA-Public Use
  Company Number: None

PATIENT
  Age: 63 Year
  Sex: Female

DRUGS (1)
  1. COSENTYX [Suspect]
     Active Substance: SECUKINUMAB
     Dates: start: 201802, end: 20181101

REACTIONS (3)
  - Therapy cessation [None]
  - Malignant melanoma [None]
  - Infection [None]

NARRATIVE: CASE EVENT DATE: 20181101
